FAERS Safety Report 23154448 (Version 1)
Quarter: 2023Q4

REPORT INFORMATION
  Report Type: Spontaneous
  Country: PT (occurrence: PT)
  Receive Date: 20231107
  Receipt Date: 20231107
  Transmission Date: 20240110
  Serious: Yes (Other)
  Sender: FDA-Public Use
  Company Number: PT-TAKEDA-2023TUS098116

PATIENT
  Age: 2 Year
  Sex: Male

DRUGS (7)
  1. HUMAN IMMUNOGLOBULIN G [Suspect]
     Active Substance: HUMAN IMMUNOGLOBULIN G
     Indication: Kawasaki^s disease
     Dosage: 200 MILLIGRAM/KILOGRAM
     Route: 042
  2. ASPIRIN [Concomitant]
     Active Substance: ASPIRIN
     Indication: Kawasaki^s disease
     Dosage: UNK
     Route: 065
  3. METHYLPREDNISOLONE [Concomitant]
     Active Substance: METHYLPREDNISOLONE
     Dosage: 30 MILLIGRAM/KILOGRAM, QD
     Route: 042
  4. PREDNISOLONE [Concomitant]
     Active Substance: PREDNISOLONE
     Dosage: UNK
     Route: 048
  5. ANAKINRA [Concomitant]
     Active Substance: ANAKINRA
     Dosage: 2 MILLIGRAM/KILOGRAM, QD
     Route: 058
  6. ANAKINRA [Concomitant]
     Active Substance: ANAKINRA
     Dosage: 3 MILLIGRAM/KILOGRAM, QD
  7. CANAKINUMAB [Concomitant]
     Active Substance: CANAKINUMAB
     Dosage: UNK

REACTIONS (2)
  - Drug ineffective [Unknown]
  - Therapeutic product effect incomplete [Unknown]
